FAERS Safety Report 5383574-6 (Version None)
Quarter: 2007Q3

REPORT INFORMATION
  Report Type: 
  Country: None (occurrence: None)
  Receive Date: 20070710
  Receipt Date: 20070703
  Transmission Date: 20080115
  Serious: Yes (Hospitalization, Disabling, Other)
  Sender: FDA-Public Use
  Company Number: US-MERCK-0612USA03079

PATIENT
  Age: 56 Year
  Sex: Female

DRUGS (4)
  1. FOSAMAX [Suspect]
     Indication: OSTEOPOROSIS PROPHYLAXIS
     Route: 048
     Dates: end: 20000101
  2. FOSAMAX [Suspect]
     Route: 048
     Dates: start: 20000101, end: 20051201
  3. FOSAMAX [Suspect]
     Route: 048
     Dates: start: 19990114
  4. ACTONEL [Suspect]
     Route: 065
     Dates: start: 20051201, end: 20060707

REACTIONS (10)
  - ANORGASMIA [None]
  - ANXIETY [None]
  - APPENDICITIS [None]
  - CHEST DISCOMFORT [None]
  - DENTAL CARIES [None]
  - GALLBLADDER DISORDER [None]
  - HAND FRACTURE [None]
  - LIMB INJURY [None]
  - OSTEONECROSIS [None]
  - SKIN LACERATION [None]
